FAERS Safety Report 8119886-2 (Version None)
Quarter: 2012Q1

REPORT INFORMATION
  Report Type: 
  Country: None (occurrence: None)
  Receive Date: 20120207
  Receipt Date: 20120130
  Transmission Date: 20120608
  Serious: No
  Sender: FDA-Public Use
  Company Number: US-B.I. PHARMACEUTICALS,INC./RIDGEFIELD-2012-BP-01826BP

PATIENT
  Sex: Female

DRUGS (5)
  1. XANAX [Concomitant]
     Indication: ANXIETY
     Route: 048
     Dates: start: 20111101
  2. VITAMIN D [Concomitant]
     Indication: SUPPLEMENTATION THERAPY
     Route: 048
     Dates: start: 20110101
  3. ATROVENT [Suspect]
  4. ALBUTEROL [Suspect]
  5. LEVOTHYROXINE SODIUM [Concomitant]
     Indication: THYROID DISORDER
     Dosage: 75 MCG
     Route: 048
     Dates: start: 20120122

REACTIONS (3)
  - VISUAL ACUITY REDUCED [None]
  - HALO VISION [None]
  - DRY EYE [None]
